FAERS Safety Report 9670398 (Version 2)
Quarter: 2013Q4

REPORT INFORMATION
  Report Type: Spontaneous
  Country: US (occurrence: US)
  Receive Date: 20131105
  Receipt Date: 20131105
  Transmission Date: 20140711
  Serious: Yes (Other)
  Sender: FDA-Public Use
  Company Number: US-PFIZER INC-2013287704

PATIENT
  Age: 67 Year
  Sex: Female

DRUGS (13)
  1. CISPLATIN [Suspect]
     Indication: OVARIAN CANCER METASTATIC
     Dosage: 20 MG/M2, CYCLIC
     Route: 065
  2. CISPLATIN [Suspect]
     Indication: OVARIAN CANCER STAGE III
  3. IFOSFAMIDE [Interacting]
     Indication: OVARIAN CANCER STAGE III
     Dosage: 1.5 G/M2 DAILY OVER 90 MIN ON DAY 1-4
     Route: 065
  4. IFOSFAMIDE [Interacting]
     Dosage: 1 G/M2 DAILY OVER 90 MIN ON DAY 1-4
     Route: 065
  5. APREPITANT [Interacting]
     Indication: PREMEDICATION
     Dosage: 125 MG, DAILY
     Route: 065
  6. APREPITANT [Interacting]
     Dosage: 80MG, DAILY (EACH MORNING)
     Route: 065
  7. MESNA [Suspect]
     Indication: OVARIAN CANCER METASTATIC
     Dosage: UNK
     Route: 065
  8. MESNA [Suspect]
     Indication: OVARIAN CANCER STAGE III
  9. ONDANSETRON [Concomitant]
     Indication: PROPHYLAXIS OF NAUSEA AND VOMITING
     Dosage: 32 MG, UNK
     Route: 065
  10. ONDANSETRON [Concomitant]
     Indication: PREMEDICATION
     Dosage: UNK
     Route: 065
  11. DEXAMETHASONE [Concomitant]
     Indication: PREMEDICATION
     Dosage: 10 MG, UNK
     Route: 065
  12. DEXAMETHASONE [Concomitant]
     Dosage: 8 MG, DAILY (EVERY MORNING)
     Route: 065
  13. METOCLOPRAMIDE [Concomitant]
     Dosage: 20 MG, 3X/DAY (EVERY 8 HOURS)
     Route: 065

REACTIONS (5)
  - Coma [Recovered/Resolved]
  - Drug interaction [Recovered/Resolved]
  - Febrile neutropenia [Unknown]
  - Nausea [Unknown]
  - Vomiting [Recovered/Resolved]
